FAERS Safety Report 17050209 (Version 3)
Quarter: 2021Q4

REPORT INFORMATION
  Report Type: Spontaneous
  Country: IN (occurrence: IN)
  Receive Date: 20191119
  Receipt Date: 20211018
  Transmission Date: 20220304
  Serious: Yes (Hospitalization)
  Sender: FDA-Public Use
  Company Number: NVSC2019IN039795

PATIENT
  Age: 38 Year
  Sex: Female

DRUGS (1)
  1. METHOTREXATE [Suspect]
     Active Substance: METHOTREXATE
     Indication: Ectopic pregnancy
     Dosage: 80 MG, UNKNOWN
     Route: 030

REACTIONS (12)
  - Toxicity to various agents [Unknown]
  - Pyrexia [Unknown]
  - Tachycardia [Unknown]
  - Tachypnoea [Unknown]
  - Hypoxia [Unknown]
  - Respiratory alkalosis [Unknown]
  - Restlessness [Unknown]
  - Dyspnoea [Unknown]
  - Abdominal pain upper [Unknown]
  - Vomiting [Unknown]
  - Maternal exposure during pregnancy [Unknown]
  - Product use in unapproved indication [Unknown]
